FAERS Safety Report 7012810-5 (Version None)
Quarter: 2010Q3

REPORT INFORMATION
  Report Type: 
  Country: None (occurrence: None)
  Receive Date: 20100924
  Receipt Date: 20100916
  Transmission Date: 20110219
  Serious: No
  Sender: FDA-Public Use
  Company Number: B0670983A

PATIENT
  Age: 61 Year
  Sex: Male
  Weight: 89 kg

DRUGS (2)
  1. ARIXTRA [Suspect]
     Indication: THROMBOSIS PROPHYLAXIS
     Route: 058
     Dates: start: 20100213
  2. COMPRESSION STOCKINGS [Concomitant]
     Dates: start: 20100314, end: 20100428

REACTIONS (1)
  - INCORRECT DRUG ADMINISTRATION DURATION [None]
